FAERS Safety Report 10160788 (Version 1)
Quarter: 2014Q2

REPORT INFORMATION
  Report Type: Spontaneous
  Country: US (occurrence: US)
  Receive Date: 20140508
  Receipt Date: 20140508
  Transmission Date: 20141212
  Serious: Yes (Hospitalization)
  Sender: FDA-Public Use
  Company Number: US-JNJFOC-20140503776

PATIENT
  Age: 82 Year
  Sex: Female
  Weight: 63.9 kg

DRUGS (6)
  1. IMBRUVICA [Suspect]
     Indication: CHRONIC LYMPHOCYTIC LEUKAEMIA
     Route: 048
     Dates: start: 20140414
  2. LEUKERAN [Concomitant]
     Route: 048
     Dates: start: 20140417, end: 20140421
  3. LISINOPRIL [Concomitant]
     Route: 048
  4. OMEPRAZOLE [Concomitant]
     Route: 048
  5. PREDNISONE [Concomitant]
     Route: 048
  6. TRAMADOL [Concomitant]
     Route: 048

REACTIONS (2)
  - Tachycardia [Recovered/Resolved]
  - Hypertension [Recovered/Resolved]
